FAERS Safety Report 20047024 (Version 2)
Quarter: 2022Q2

REPORT INFORMATION
  Report Type: Other
  Country: IL (occurrence: None)
  Receive Date: 20211109
  Receipt Date: 20220628
  Transmission Date: 20220721
  Serious: No
  Sender: FDA-Public Use
  Company Number: IL-ROCHE-2945113

PATIENT
  Sex: Male

DRUGS (1)
  1. OCREVUS [Suspect]
     Active Substance: OCRELIZUMAB
     Indication: Relapsing-remitting multiple sclerosis
     Route: 042
     Dates: start: 20200909

REACTIONS (9)
  - Arthralgia [Not Recovered/Not Resolved]
  - Asthenia [Unknown]
  - Urinary incontinence [Unknown]
  - Vision blurred [Unknown]
  - Disturbance in attention [Unknown]
  - Anal incontinence [Unknown]
  - Dizziness [Not Recovered/Not Resolved]
  - Disturbance in attention [Not Recovered/Not Resolved]
  - Nausea [Not Recovered/Not Resolved]
